FAERS Safety Report 22111932 (Version 1)
Quarter: 2023Q1

REPORT INFORMATION
  Report Type: Spontaneous
  Country: GB (occurrence: GB)
  Receive Date: 20230318
  Receipt Date: 20230318
  Transmission Date: 20230418
  Serious: Yes (Other)
  Sender: FDA-Public Use
  Company Number: GB-CELLTRION INC.-2023GB005401

PATIENT

DRUGS (2)
  1. INFLIXIMAB [Suspect]
     Active Substance: INFLIXIMAB
     Indication: Crohn^s disease
     Dosage: UNK
     Route: 058
     Dates: start: 202302
  2. ANTIBIOTIC EYE DROPS [Concomitant]
     Dosage: HAS 7 MORE DAYS OF ANTIBIOTIC EYE DROPS LEFT

REACTIONS (2)
  - Surgery [Unknown]
  - Intentional dose omission [Unknown]
